FAERS Safety Report 20333432 (Version 2)
Quarter: 2022Q1

REPORT INFORMATION
  Report Type: Report from Study
  Country: CA (occurrence: CA)
  Receive Date: 20220113
  Receipt Date: 20220207
  Transmission Date: 20220423
  Serious: Yes (Hospitalization)
  Sender: FDA-Public Use
  Company Number: CA-JNJFOC-20220116416

PATIENT
  Age: 81 Year
  Sex: Male

DRUGS (1)
  1. STELARA [Suspect]
     Active Substance: USTEKINUMAB
     Indication: Psoriasis
     Route: 058

REACTIONS (4)
  - Sepsis [Recovered/Resolved]
  - Fall [Unknown]
  - Rib fracture [Unknown]
  - Inappropriate schedule of product administration [Unknown]

NARRATIVE: CASE EVENT DATE: 20220101
